FAERS Safety Report 5625740-8 (Version None)
Quarter: 2008Q1

REPORT INFORMATION
  Report Type: 
  Country: None (occurrence: None)
  Receive Date: 20080214
  Receipt Date: 20080214
  Transmission Date: 20080703
  Serious: Yes (Other)
  Sender: FDA-Public Use
  Company Number: None

PATIENT
  Age: 88 Year
  Sex: Male
  Weight: 90 kg

DRUGS (3)
  1. HEPARIN [Suspect]
     Indication: ANTICOAGULANT THERAPY
     Dosage: 4000 ML 3 TIMES PER WEEK HEMODIALYSIS
  2. HEPARIN [Suspect]
     Indication: HAEMODIALYSIS
     Dosage: 4000 ML 3 TIMES PER WEEK HEMODIALYSIS
  3. HEPARIN [Suspect]

REACTIONS (3)
  - HYPOTENSION [None]
  - NAUSEA [None]
  - VOMITING [None]
